FAERS Safety Report 26121072 (Version 1)
Quarter: 2025Q4

REPORT INFORMATION
  Report Type: Spontaneous
  Country: US (occurrence: None)
  Receive Date: 20251203
  Receipt Date: 20251203
  Transmission Date: 20260118
  Serious: Yes (Hospitalization)
  Sender: FDA-CTU
  Company Number: None

PATIENT
  Sex: Female
  Weight: 76.05 kg

DRUGS (2)
  1. WINREVAIR [Suspect]
     Active Substance: SOTATERCEPT-CSRK
     Indication: Pulmonary arterial hypertension
     Dosage: FREQUENCY : EVERY THREE WEEKS;?
     Route: 058
     Dates: start: 20240815
  2. SODIUM CHLOR SDV (50ML/FTV) [Concomitant]

REACTIONS (5)
  - Intentional dose omission [None]
  - Thrombosis [None]
  - Fatigue [None]
  - Malaise [None]
  - Medical device change [None]
